APPROVED DRUG PRODUCT: DOXAZOSIN MESYLATE
Active Ingredient: DOXAZOSIN MESYLATE
Strength: EQ 2MG BASE
Dosage Form/Route: TABLET;ORAL
Application: A208719 | Product #002 | TE Code: AB
Applicant: ZYDUS PHARMACEUTICALS USA INC
Approved: Jul 7, 2017 | RLD: No | RS: No | Type: RX